FAERS Safety Report 24281323 (Version 1)
Quarter: 2024Q3

REPORT INFORMATION
  Report Type: Spontaneous
  Country: US (occurrence: None)
  Receive Date: 20240830
  Receipt Date: 20240830
  Transmission Date: 20241017
  Serious: No
  Sender: Public
  Company Number: None

PATIENT

DRUGS (3)
  1. METFORMIN [Suspect]
     Active Substance: METFORMIN HYDROCHLORIDE
  2. SITAGLIPTIN [Suspect]
     Active Substance: SITAGLIPTIN
  3. INSULIN HUMAN [Suspect]
     Active Substance: INSULIN HUMAN

REACTIONS (4)
  - Abdominal pain [None]
  - Nausea [None]
  - Circumstance or information capable of leading to medication error [None]
  - Incorrect dose administered [None]
